FAERS Safety Report 5192071-2 (Version None)
Quarter: 2006Q4

REPORT INFORMATION
  Report Type: 
  Country: None (occurrence: None)
  Receive Date: 20061221
  Receipt Date: 20061221
  Transmission Date: 20070319
  Serious: Yes (Hospitalization)
  Sender: FDA-Public Use
  Company Number: None

PATIENT
  Sex: Female
  Weight: 77.1115 kg

DRUGS (5)
  1. RAMELTEON, 8 MG , TAKEDA PHARMACEUTICALS [Suspect]
     Indication: INSOMNIA
     Dosage: 8MG  DAILY AT BED  PO
     Route: 048
     Dates: start: 20060927, end: 20061129
  2. LAMICTAL [Concomitant]
  3. WELLBUTRIN [Concomitant]
  4. EFFEXOR [Concomitant]
  5. KLONOPIN [Concomitant]

REACTIONS (2)
  - DEPRESSION [None]
  - SUICIDAL IDEATION [None]
